FAERS Safety Report 5231805-5 (Version None)
Quarter: 2007Q1

REPORT INFORMATION
  Report Type: 
  Country: None (occurrence: None)
  Receive Date: 20070206
  Receipt Date: 20070125
  Transmission Date: 20070707
  Serious: Yes (Hospitalization, Other)
  Sender: FDA-Public Use
  Company Number: US-PFIZER INC-2005169652

PATIENT
  Sex: Male
  Weight: 112.9 kg

DRUGS (5)
  1. CELEBREX [Suspect]
     Indication: PAIN
     Route: 048
  2. VIOXX [Suspect]
     Indication: BACK PAIN
     Dates: start: 20020621, end: 20021116
  3. VICODIN [Concomitant]
     Dates: start: 20021001, end: 20021116
  4. FLEXERIL [Concomitant]
     Dates: start: 20021021, end: 20021116
  5. ULTRAM [Concomitant]
     Dates: start: 20020722, end: 20021116

REACTIONS (3)
  - BLOOD CHOLESTEROL INCREASED [None]
  - HYPERTENSION [None]
  - MYOCARDIAL INFARCTION [None]
